FAERS Safety Report 11774438 (Version 1)
Quarter: 2015Q4

REPORT INFORMATION
  Report Type: Spontaneous
  Country: US (occurrence: US)
  Receive Date: 20151124
  Receipt Date: 20151124
  Transmission Date: 20160304
  Serious: Yes (Hospitalization, Other)
  Sender: FDA-Public Use
  Company Number: US-ASTRAZENECA-2015SF11909

PATIENT
  Sex: Male

DRUGS (1)
  1. SEROQUEL [Suspect]
     Active Substance: QUETIAPINE FUMARATE
     Route: 048

REACTIONS (7)
  - Insulin resistance [Unknown]
  - Blood glucose abnormal [Unknown]
  - Cerebral atrophy [Unknown]
  - Hyperphagia [Unknown]
  - Agitation [Unknown]
  - Polyuria [Unknown]
  - Aggression [Unknown]
